FAERS Safety Report 6427999-6 (Version None)
Quarter: 2009Q4

REPORT INFORMATION
  Report Type: 
  Country: None (occurrence: None)
  Receive Date: 20091105
  Receipt Date: 20091028
  Transmission Date: 20100525
  Serious: Yes (Other)
  Sender: FDA-Public Use
  Company Number: DE-ROCHE-662516

PATIENT
  Sex: Female
  Weight: 56 kg

DRUGS (1)
  1. TAMIFLU [Suspect]
     Dosage: DOSE:1X1
     Route: 048
     Dates: start: 20091001, end: 20091007

REACTIONS (2)
  - BLOOD ALCOHOL INCREASED [None]
  - ROAD TRAFFIC ACCIDENT [None]
